FAERS Safety Report 6404685-X (Version None)
Quarter: 2009Q4

REPORT INFORMATION
  Report Type: 
  Country: None (occurrence: None)
  Receive Date: 20091016
  Receipt Date: 20090928
  Transmission Date: 20100525
  Serious: Yes (Hospitalization)
  Sender: FDA-Public Use
  Company Number: US-ELI_LILLY_AND_COMPANY-US200909006777

PATIENT
  Sex: Female
  Weight: 99.773 kg

DRUGS (2)
  1. HUMALOG [Suspect]
     Indication: TYPE 2 DIABETES MELLITUS
     Dosage: UNK, UNK
     Dates: start: 19980101, end: 20090609
  2. LANTUS [Concomitant]
     Indication: TYPE 2 DIABETES MELLITUS
     Dosage: UNK, UNK
     Dates: start: 19980101, end: 20090609

REACTIONS (3)
  - HYPOGLYCAEMIA [None]
  - PNEUMONIA [None]
  - WOUND [None]
